FAERS Safety Report 26084344 (Version 2)
Quarter: 2025Q4

REPORT INFORMATION
  Report Type: Report from Study
  Country: GB (occurrence: None)
  Receive Date: 20251124
  Receipt Date: 20251204
  Transmission Date: 20260118
  Serious: Yes (Other)
  Sender: UCB
  Company Number: GB-UCBSA-2025061179

PATIENT
  Age: 32 Year
  Weight: 84 kg

DRUGS (4)
  1. BIMEKIZUMAB [Suspect]
     Active Substance: BIMEKIZUMAB
     Indication: Psoriatic arthropathy
     Dosage: 160 MILLIGRAM, MONTHLY (QM)
  2. FEXOFENADINE [Concomitant]
     Active Substance: FEXOFENADINE HYDROCHLORIDE
     Indication: Rash
     Dosage: 180 MILLIGRAM, ONCE DAILY (QD)
  3. CLOTRIMAZOLE [Concomitant]
     Active Substance: CLOTRIMAZOLE
     Indication: Skin bacterial infection
     Dosage: UNK UNK, 2X/DAY (BID)
  4. TRIMOVATE [Concomitant]
     Active Substance: CLOBETASONE BUTYRATE\NYSTATIN\OXYTETRACYCLINE CALCIUM
     Indication: Skin bacterial infection
     Dosage: UNK

REACTIONS (3)
  - Nephrolithiasis [Recovering/Resolving]
  - Rash [Recovering/Resolving]
  - Onychomycosis [Not Recovered/Not Resolved]
